FAERS Safety Report 6827575-7 (Version None)
Quarter: 2010Q3

REPORT INFORMATION
  Report Type: 
  Country: None (occurrence: None)
  Receive Date: 20100709
  Receipt Date: 20070122
  Transmission Date: 20110219
  Serious: No
  Sender: FDA-Public Use
  Company Number: US-PFIZER INC-2007006950

PATIENT
  Sex: Female
  Weight: 73.94 kg

DRUGS (8)
  1. CHANTIX [Suspect]
     Indication: SMOKING CESSATION THERAPY
     Dates: start: 20070101
  2. ZOLOFT [Concomitant]
  3. GEODON [Concomitant]
  4. KLONOPIN [Concomitant]
  5. TRAZODONE [Concomitant]
  6. LORTAB [Concomitant]
  7. CRESTOR [Concomitant]
  8. ZELNORM [Concomitant]

REACTIONS (1)
  - NAUSEA [None]
